FAERS Safety Report 6078426-2 (Version None)
Quarter: 2009Q1

REPORT INFORMATION
  Report Type: 
  Country: None (occurrence: None)
  Receive Date: 20090212
  Receipt Date: 20090129
  Transmission Date: 20090719
  Serious: Yes (Hospitalization)
  Sender: FDA-Public Use
  Company Number: 20090115

PATIENT
  Sex: Male
  Weight: 61 kg

DRUGS (3)
  1. OMEPRAZOLE [Suspect]
     Indication: GASTROOESOPHAGEAL REFLUX DISEASE
     Dosage: 20 MG ONCE A DAY,ORAL
     Route: 048
     Dates: start: 20080929, end: 20081229
  2. THYROXINE [Concomitant]
  3. VIADUR IMPLANT [Concomitant]

REACTIONS (2)
  - CEREBROVASCULAR ACCIDENT [None]
  - SELF-MEDICATION [None]
